FAERS Safety Report 15801837 (Version 1)
Quarter: 2019Q1

REPORT INFORMATION
  Report Type: Spontaneous
  Country: CN (occurrence: CN)
  Receive Date: 20190109
  Receipt Date: 20190109
  Transmission Date: 20190417
  Serious: Yes (Hospitalization, Other)
  Sender: FDA-Public Use
  Company Number: CN-ROCHE-2239710

PATIENT
  Age: 54 Year
  Sex: Female

DRUGS (3)
  1. WARFARIN [Concomitant]
     Active Substance: WARFARIN
  2. HEPARIN [Concomitant]
     Active Substance: HEPARIN SODIUM
  3. HERCEPTIN [Suspect]
     Active Substance: TRASTUZUMAB
     Indication: INVASIVE DUCTAL BREAST CARCINOMA
     Route: 065

REACTIONS (7)
  - Pulmonary thrombosis [Unknown]
  - Muscular weakness [Unknown]
  - Anaemia [Unknown]
  - Oedema peripheral [Unknown]
  - Joint swelling [Recovered/Resolved]
  - Thrombosis [Unknown]
  - Arthralgia [Recovered/Resolved]

NARRATIVE: CASE EVENT DATE: 20160919
